FAERS Safety Report 7972637-4 (Version None)
Quarter: 2011Q4

REPORT INFORMATION
  Report Type: 
  Country: None (occurrence: None)
  Receive Date: 20111213
  Receipt Date: 20111130
  Transmission Date: 20120403
  Serious: Yes (Hospitalization)
  Sender: FDA-Public Use
  Company Number: DE-RANBAXY-2011US-51035

PATIENT

DRUGS (3)
  1. AMOXICILLIN [Suspect]
     Indication: HELICOBACTER GASTRITIS
     Dosage: 500 MG, TID
     Route: 048
     Dates: start: 20111104, end: 20111109
  2. PANTOPRAZOLE [Suspect]
     Indication: HELICOBACTER GASTRITIS
     Dosage: 40 MG, BID
     Route: 048
     Dates: start: 20111104, end: 20111109
  3. METRONIDAZOLE [Suspect]
     Indication: HELICOBACTER GASTRITIS
     Dosage: 500 MG, TID
     Route: 048
     Dates: start: 20111104, end: 20111109

REACTIONS (6)
  - PAIN [None]
  - PRESYNCOPE [None]
  - NAUSEA [None]
  - ABDOMINAL PAIN [None]
  - HEADACHE [None]
  - DIZZINESS [None]
